FAERS Safety Report 15737857 (Version 3)
Quarter: 2019Q1

REPORT INFORMATION
  Report Type: Report from Study
  Country: US (occurrence: US)
  Receive Date: 20181219
  Receipt Date: 20190114
  Transmission Date: 20190417
  Serious: Yes (Other)
  Sender: FDA-Public Use
  Company Number: US-SHIRE-US201848827

PATIENT
  Age: 49 Year
  Sex: Female

DRUGS (3)
  1. TAKHZYRO [Suspect]
     Active Substance: LANADELUMAB-FLYO
     Dosage: 300 MG, 2X A WEEK
     Route: 058
     Dates: start: 20181119
  2. TAKHZYRO [Suspect]
     Active Substance: LANADELUMAB-FLYO
     Indication: IMMUNE SYSTEM DISORDER
     Dosage: 300 MG, 2X A MONTH
     Route: 058
     Dates: start: 20180312
  3. TAKHZYRO [Suspect]
     Active Substance: LANADELUMAB-FLYO
     Dosage: 300 MG, 2X A WEEK
     Route: 058
     Dates: start: 20181203, end: 20181217

REACTIONS (7)
  - Rash generalised [Unknown]
  - Adverse drug reaction [Unknown]
  - Urticaria [Unknown]
  - Hereditary angioedema [Recovered/Resolved]
  - Malaise [Unknown]
  - Myalgia [Unknown]
  - Injection site urticaria [Recovering/Resolving]

NARRATIVE: CASE EVENT DATE: 20181203
